FAERS Safety Report 19405889 (Version 4)
Quarter: 2021Q4

REPORT INFORMATION
  Report Type: Spontaneous
  Country: JP (occurrence: JP)
  Receive Date: 20210611
  Receipt Date: 20211019
  Transmission Date: 20220303
  Serious: Yes (Other)
  Sender: FDA-Public Use
  Company Number: JP-ASTELLAS-2021JP010815

PATIENT
  Age: 9 Decade
  Sex: Female

DRUGS (2)
  1. XOSPATA [Suspect]
     Active Substance: GILTERITINIB
     Indication: Acute myeloid leukaemia recurrent
     Route: 048
     Dates: start: 20210604, end: 20210609
  2. XOSPATA [Suspect]
     Active Substance: GILTERITINIB
     Dosage: 80 MG, ONCE DAILY, ADMINISTRATION WAS REPEATED FOR 3 WEEKS WITH A 3 WEEKS REST PERIOD
     Route: 048
     Dates: start: 20210621

REACTIONS (1)
  - Myelosuppression [Recovered/Resolved]

NARRATIVE: CASE EVENT DATE: 20210607
